FAERS Safety Report 9803252 (Version 1)
Quarter: 2014Q1

REPORT INFORMATION
  Report Type: Spontaneous
  Country: US (occurrence: None)
  Receive Date: 20140107
  Receipt Date: 20140107
  Transmission Date: 20141002
  Serious: Yes (Death, Life-Threatening, Hospitalization)
  Sender: FDA-Public Use
  Company Number: None

PATIENT
  Age: 81 Year
  Sex: Male
  Weight: 58.06 kg

DRUGS (1)
  1. VIMPAT [Suspect]
     Indication: CONVULSION
     Route: 048

REACTIONS (2)
  - Sleep terror [None]
  - Sleep terror [None]
